FAERS Safety Report 19759958 (Version 3)
Quarter: 2022Q4

REPORT INFORMATION
  Report Type: Spontaneous
  Country: US (occurrence: US)
  Receive Date: 20210830
  Receipt Date: 20221116
  Transmission Date: 20230112
  Serious: Yes (Other)
  Sender: FDA-Public Use
  Company Number: US-JNJFOC-20210843892

PATIENT
  Age: 63 Year
  Sex: Female
  Weight: 86.260 kg

DRUGS (7)
  1. NEUTROGENA ULTRA SHEER BODY MIST SUNSCRN BR?D SPECT SPF 30 (AV\HOM\OCT [Suspect]
     Active Substance: AVOBENZONE\HOMOSALATE\OCTISALATE\OCTOCRYLENE\OXYBENZONE
     Indication: Neoplasm prophylaxis
     Route: 061
  2. AVOBENZONE\HOMOSALATE\OCTISALATE\OCTOCRYLENE [Suspect]
     Active Substance: AVOBENZONE\HOMOSALATE\OCTISALATE\OCTOCRYLENE
     Indication: Neoplasm prophylaxis
     Route: 061
  3. NEUTROGENA ULTRA SHEER BODY MIST SUNSCREEN BROAD SPECTRUM SPF 30 (AVOB [Suspect]
     Active Substance: AVOBENZONE\HOMOSALATE\OCTISALATE\OCTOCRYLENE
     Indication: Neoplasm prophylaxis
     Route: 061
  4. NEUTROGENA BEACH DEFENSE WATER PLUS SUN PROTECTION SUNSCREEN BROAD SPE [Suspect]
     Active Substance: AVOBENZONE\HOMOSALATE\OCTISALATE\OCTOCRYLENE
     Indication: Neoplasm prophylaxis
     Route: 061
  5. OMEPRAZOLE [Concomitant]
     Active Substance: OMEPRAZOLE
     Indication: Product used for unknown indication
     Route: 048
  6. ZOLOFT [Concomitant]
     Active Substance: SERTRALINE HYDROCHLORIDE
     Indication: Product used for unknown indication
     Route: 048
  7. MOTRIN [Concomitant]
     Active Substance: IBUPROFEN
     Indication: Product used for unknown indication

REACTIONS (12)
  - Squamous cell carcinoma [Unknown]
  - Basal cell carcinoma [Unknown]
  - Malignant melanoma stage I [Unknown]
  - Exposure to toxic agent [Unknown]
  - Seborrhoeic keratosis [Unknown]
  - Actinic keratosis [Recovered/Resolved]
  - Melanocytic naevus [Unknown]
  - Ephelides [Unknown]
  - Neoplasm [Unknown]
  - Lichenoid keratosis [Unknown]
  - Dermatitis [Unknown]
  - Haemangioma [Unknown]

NARRATIVE: CASE EVENT DATE: 20170928
